FAERS Safety Report 12221542 (Version 2)
Quarter: 2016Q4

REPORT INFORMATION
  Report Type: Spontaneous
  Country: US (occurrence: US)
  Receive Date: 20160330
  Receipt Date: 20161024
  Transmission Date: 20170207
  Serious: Yes (Hospitalization)
  Sender: FDA-Public Use
  Company Number: US-PFIZER INC-2015394870

PATIENT
  Age: 71 Year
  Sex: Male

DRUGS (44)
  1. LASIX [Concomitant]
     Active Substance: FUROSEMIDE
     Dosage: 20 MG, 2X/DAY
     Route: 048
     Dates: start: 20150810
  2. LOPRESSOR [Concomitant]
     Active Substance: METOPROLOL TARTRATE
     Dosage: 50 MG, 2X/DAY(TWICE DAILY WITH BREAKFAST AND DINNER)
     Route: 048
     Dates: start: 20150605
  3. DELTASONE [Concomitant]
     Active Substance: PREDNISONE
     Dosage: 5 MG, 2X/DAY
     Route: 048
     Dates: start: 20150130
  4. ZITHROMAX [Concomitant]
     Active Substance: AZITHROMYCIN DIHYDRATE
     Dosage: 2 TABS BY MOUTH THREE TIMES WEEKLY)
     Route: 048
     Dates: start: 20160718
  5. MIRALAX /06344701/ [Concomitant]
     Indication: CONSTIPATION
     Dosage: 17 G, AS NEEDED(DAILY AS NEEDED FOR CONSTIPATION, MIX IN 8 OZ. OF FLUID)
     Route: 048
     Dates: start: 20140219
  6. COLACE [Concomitant]
     Active Substance: DOCUSATE SODIUM
     Dosage: 100 MG, 2X/DAY
     Route: 048
     Dates: start: 20140206
  7. NOVOLOG [Concomitant]
     Active Substance: INSULIN ASPART
     Dosage: UNK(3 UNITS WITH BREAKFAST AND 5UNITS WITH LUNCH AND DINNER PLUS SLIDING SCALE WITH A MAXIMUM OF 39)
     Route: 058
     Dates: start: 20140918
  8. FERROUS SULFATE. [Concomitant]
     Active Substance: FERROUS SULFATE
     Dosage: 325 MG, 2X/DAY(AFTER LUNCH AND DINNER)
     Route: 048
     Dates: start: 20140628
  9. VFEND [Suspect]
     Active Substance: VORICONAZOLE
     Dosage: 200 MG, 2X/DAY
     Route: 048
     Dates: start: 20140617
  10. ZITHROMAX [Concomitant]
     Active Substance: AZITHROMYCIN DIHYDRATE
     Dosage: 2 TABS BY MOUTH THREE TIMES WEEKLY)
     Route: 048
     Dates: start: 20150629
  11. TRADJENTA [Concomitant]
     Active Substance: LINAGLIPTIN
     Dosage: 5 MG, DAILY
     Route: 048
     Dates: start: 20151109
  12. CELLCEPT [Concomitant]
     Active Substance: MYCOPHENOLATE MOFETIL\MYCOPHENOLATE MOFETIL HYDROCHLORIDE
     Indication: LUNG TRANSPLANT
     Dosage: 500 MG, 2X/DAY (250 MG 2 CAPS TWICE DAILY)
     Route: 048
     Dates: start: 20151014
  13. CELLCEPT [Concomitant]
     Active Substance: MYCOPHENOLATE MOFETIL\MYCOPHENOLATE MOFETIL HYDROCHLORIDE
     Dosage: 1000 MG, 2X/DAY (TAKE 4 CAPS (1,000 MG TOTAL) BY MOUTH TWICE DAILY)
     Route: 048
     Dates: start: 20160607
  14. PRAVACHOL [Concomitant]
     Active Substance: PRAVASTATIN SODIUM
     Dosage: 20 MG, DAILY
     Route: 048
     Dates: start: 20151005
  15. BACTROBAN /00753902/ [Concomitant]
     Indication: NASAL DISCOMFORT
     Dosage: 2 %, AS NEEDED ( 1 APPLICATION IN BOTH NOSTRILS AS NEEDED (DAILY AS NEEDED FOR NASAL SORES))
     Route: 045
     Dates: start: 20150811
  16. PROTONIX [Concomitant]
     Active Substance: PANTOPRAZOLE SODIUM
     Dosage: 40 MG, DAILY(BEFORE BREAKFAST)
     Route: 048
  17. HECORIA [Concomitant]
     Active Substance: TACROLIMUS
     Dosage: 0.5 MG, DAILY (HOLD X 3 DOSES THEN STARTING 06MAR205 TAKE 0.5MG AT 9AM EVERYDAY)
     Route: 048
     Dates: start: 20150403
  18. TACROLIMUS. [Concomitant]
     Active Substance: TACROLIMUS
     Indication: LUNG TRANSPLANT
     Dosage: 0.5 MG, 2X/DAY (EVERY 12 HOURS)
     Route: 048
     Dates: start: 20151029
  19. LASIX [Concomitant]
     Active Substance: FUROSEMIDE
     Dosage: 20 MG, 2X/DAY
     Route: 048
     Dates: start: 20160607
  20. MICRO-K [Concomitant]
     Active Substance: POTASSIUM CHLORIDE
     Dosage: 10 MEQ, 2X/DAY
     Route: 048
     Dates: start: 20150816
  21. FLOMAX [Concomitant]
     Active Substance: TAMSULOSIN HYDROCHLORIDE
     Dosage: 0.4 MG, DAILY
     Route: 048
     Dates: start: 20160419
  22. SEPTRA DS [Concomitant]
     Active Substance: SULFAMETHOXAZOLE\TRIMETHOPRIM
     Dosage: 1 DF, ALTERNATE DAY(SULFAMETHOXAZOLE-400MG, TRIMETHOPRIM-80MG)
     Dates: start: 20141119
  23. AMARYL [Concomitant]
     Active Substance: GLIMEPIRIDE
     Dosage: 2 MG DAILY (WITH BREAKFAST. TOOK WITH FIRST AND MAIN MEAL OF THE DAY)
     Route: 048
     Dates: start: 20160920
  24. FOSAMAX [Concomitant]
     Active Substance: ALENDRONATE SODIUM
     Dosage: 35 MG, WEEKLY (EVERY 7 DAYS. MUST TAKE 1/2 HR BEFORE BREAKFAST WITH PLAIN WATER AND REMAIN UP)
     Route: 048
     Dates: start: 20160920
  25. VALCYTE [Concomitant]
     Active Substance: VALGANCICLOVIR HYDROCHLORIDE
     Dosage: 450 MG, DAILY
     Route: 048
     Dates: start: 20140617
  26. ASPIRIN 81 [Concomitant]
     Active Substance: ASPIRIN
     Dosage: 81 MG, DAILY
     Route: 048
  27. BACTRIM DS [Concomitant]
     Active Substance: SULFAMETHOXAZOLE\TRIMETHOPRIM
     Dosage: 1 DF, ALTERNATE DAY(SULFAMETHOXAZOLE-400MG, TRIMETHOPRIM-80MG)
     Route: 048
     Dates: start: 20141119
  28. HUMALOG KWIKPEN [Concomitant]
     Active Substance: INSULIN LISPRO
     Dosage: UNK
     Route: 058
     Dates: start: 20160607
  29. FLONASE [Concomitant]
     Active Substance: FLUTICASONE PROPIONATE
     Dosage: 50 UG, 2X/DAY(INSTILL 1 SPRAY IN EACH NOSTRIL)
     Route: 045
     Dates: start: 20150902
  30. FLOMAX [Concomitant]
     Active Substance: TAMSULOSIN HYDROCHLORIDE
     Dosage: 0.4 MG, DAILY
     Route: 048
     Dates: start: 20150629
  31. LOPRESSOR [Concomitant]
     Active Substance: METOPROLOL TARTRATE
     Dosage: 50 MG, 2X/DAY(TWICE DAILY WITH BREAKFAST AND DINNER)
     Route: 048
     Dates: start: 20160614
  32. REGLAN [Concomitant]
     Active Substance: METOCLOPRAMIDE HYDROCHLORIDE
     Dosage: 5 MG, 4X/DAY(BEFORE MEALS AND BEDTIME)
     Route: 048
     Dates: start: 20150401
  33. REGLAN [Concomitant]
     Active Substance: METOCLOPRAMIDE HYDROCHLORIDE
     Dosage: 5 MG, 4X/DAY(BEFORE MEALS AND BEDTIME)
     Route: 048
     Dates: start: 20160502
  34. ATROVENT [Concomitant]
     Active Substance: IPRATROPIUM BROMIDE
     Indication: NASAL CONGESTION
     Dosage: UNK, AS NEEDED(1 SPRAY IN BOTH NOSTRILS EVERY 6 HOURS)
     Route: 045
     Dates: start: 20140224
  35. MAG-OX [Concomitant]
     Active Substance: MAGNESIUM OXIDE
     Dosage: 400 MG, 2X/DAY(TWICE DAILY AFTER LUNCH AND DINNER)
     Route: 048
     Dates: start: 20140206
  36. ONGLYZA [Concomitant]
     Active Substance: SAXAGLIPTIN HYDROCHLORIDE
     Dosage: 5 MG, DAILY
     Route: 048
     Dates: start: 20151106
  37. FOSAMAX [Concomitant]
     Active Substance: ALENDRONATE SODIUM
     Dosage: 70 MG, WEEKLY(TAKE 1 TAB (70 MG TOTAL) BY MOUTH EVERY 7 DAYS. MUST TAKE 1/2 HR BEFORE BREAKFAST)
     Route: 048
     Dates: start: 20150921
  38. ATROPINE /00002802/ [Concomitant]
     Active Substance: ATROPINE
     Indication: DROOLING
     Dosage: UNK(2 DROPS UNDER YOUR TONGUE EVERY NIGHT)
     Route: 060
     Dates: start: 20141230
  39. NORCO [Concomitant]
     Active Substance: ACETAMINOPHEN\HYDROCODONE BITARTRATE
     Indication: PAIN
     Dosage: HYDROCODONE BITARTRATE-5MG, PARACETAMOL-325MG; EVERY 4 HOURS AS NEEDED
     Route: 048
     Dates: start: 20150519
  40. THERAGRAN /01824401/ [Concomitant]
     Dosage: 1 DF, DAILY(WITH LUNCH.)
     Route: 048
     Dates: start: 20140206
  41. ATROVENT [Concomitant]
     Active Substance: IPRATROPIUM BROMIDE
     Dosage: UNK, AS NEEDED(1 SPRAY IN BOTH NOSTRILS EVERY 6 HOURS)
     Route: 045
     Dates: start: 20160906
  42. VITAMIN C [Concomitant]
     Active Substance: ASCORBIC ACID
     Dosage: 500 MG, 2X/DAY(AFTER LUNCH AND DINNER)
     Route: 048
     Dates: start: 20140206
  43. CITRACAL-D [Concomitant]
     Dosage: 1 DF, 2X/DAY (CALCIUM CITRATE-315MG, COLECALCIFEROL-200MG (AFTER LUNCH AND DINNER))
     Route: 048
     Dates: start: 20140206
  44. MELATONIN [Concomitant]
     Active Substance: MELATONIN
     Dosage: 1.5 MG, 1X/DAY (AT BEDTIME)
     Route: 048
     Dates: start: 20160830

REACTIONS (1)
  - Respiratory syncytial virus infection [Unknown]
